FAERS Safety Report 5644532-7 (Version None)
Quarter: 2008Q1

REPORT INFORMATION
  Report Type: 
  Country: None (occurrence: None)
  Receive Date: 20080229
  Receipt Date: 20070219
  Transmission Date: 20080703
  Serious: No
  Sender: FDA-Public Use
  Company Number: A0640087A

PATIENT
  Age: 38 Year
  Sex: Female

DRUGS (3)
  1. VALTREX [Suspect]
     Dosage: 500MG TWICE PER DAY
     Route: 048
     Dates: start: 20060801, end: 20060801
  2. ZOVIRAX [Suspect]
     Dosage: 400MG SINGLE DOSE
     Route: 048
     Dates: start: 20070213, end: 20070213
  3. NO CONCURRENT MEDICATION [Concomitant]

REACTIONS (7)
  - HYPERSENSITIVITY [None]
  - ORAL HERPES [None]
  - PAIN [None]
  - RASH PUSTULAR [None]
  - SCAR [None]
  - SKIN ULCER [None]
  - URTICARIA [None]
